FAERS Safety Report 9172158 (Version 1)
Quarter: 2013Q1

REPORT INFORMATION
  Report Type: Spontaneous
  Country: US (occurrence: US)
  Receive Date: 20130319
  Receipt Date: 20130319
  Transmission Date: 20140127
  Serious: Yes (Other)
  Sender: FDA-Public Use
  Company Number: US-AMGEN-USASP2013018957

PATIENT
  Age: 74 Year
  Sex: Male

DRUGS (1)
  1. ENBREL [Suspect]
     Indication: RHEUMATOID ARTHRITIS
     Dosage: UNK
     Dates: start: 20130301

REACTIONS (5)
  - Pain [Not Recovered/Not Resolved]
  - Chills [Not Recovered/Not Resolved]
  - Pyrexia [Not Recovered/Not Resolved]
  - Arthralgia [Not Recovered/Not Resolved]
  - Activities of daily living impaired [Not Recovered/Not Resolved]
